FAERS Safety Report 4330646-0 (Version None)
Quarter: 2004Q2

REPORT INFORMATION
  Report Type: 
  Country: None (occurrence: None)
  Receive Date: 20040402
  Receipt Date: 20040329
  Transmission Date: 20050107
  Serious: Yes (Other)
  Sender: FDA-Public Use
  Company Number: US-GLAXOSMITHKLINE-A0504909A

PATIENT
  Sex: Female

DRUGS (4)
  1. PAXIL CR [Suspect]
     Route: 048
  2. RIBAVIRIN [Concomitant]
  3. INTERFERON [Concomitant]
  4. NYTOL [Concomitant]

REACTIONS (2)
  - AMNESIA [None]
  - MURDER [None]
